FAERS Safety Report 4695738-5 (Version None)
Quarter: 2005Q2

REPORT INFORMATION
  Report Type: 
  Country: None (occurrence: None)
  Receive Date: 20050616
  Receipt Date: 20050616
  Transmission Date: 20051028
  Serious: Yes (Other)
  Sender: FDA-Public Use
  Company Number: None

PATIENT
  Age: 76 Year
  Sex: Female
  Weight: 58.9676 kg

DRUGS (1)
  1. LAMISIL [Suspect]
     Dosage: 1 PER DAY FOR 3 MO'S

REACTIONS (10)
  - AGEUSIA [None]
  - ALOPECIA [None]
  - ANOREXIA [None]
  - DIZZINESS [None]
  - FATIGUE [None]
  - HEADACHE [None]
  - NAUSEA [None]
  - PAIN [None]
  - VISUAL DISTURBANCE [None]
  - WEIGHT DECREASED [None]
